FAERS Safety Report 16068121 (Version 1)
Quarter: 2019Q1

REPORT INFORMATION
  Report Type: Spontaneous
  Country: AU (occurrence: AU)
  Receive Date: 20190313
  Receipt Date: 20190313
  Transmission Date: 20190418
  Serious: Yes (Hospitalization)
  Sender: FDA-Public Use
  Company Number: AU-NOVOPROD-650060

PATIENT
  Sex: Male

DRUGS (1)
  1. RYZODEG 70/30 [Suspect]
     Active Substance: INSULIN ASPART\INSULIN DEGLUDEC
     Indication: PRODUCT USED FOR UNKNOWN INDICATION
     Dosage: UNK:BD (TWICE DAILY) RYZODEG. HIGH DOSAGES
     Route: 065

REACTIONS (2)
  - Acute myocardial infarction [Unknown]
  - Hypoglycaemia [Unknown]
